FAERS Safety Report 15385440 (Version 3)
Quarter: 2018Q4

REPORT INFORMATION
  Report Type: Report from Study
  Country: JP (occurrence: JP)
  Receive Date: 20180914
  Receipt Date: 20181229
  Transmission Date: 20190204
  Serious: Yes (Death, Hospitalization, Other)
  Sender: FDA-Public Use
  Company Number: JP-AMGEN-JPNCT2017184372

PATIENT
  Age: 80 Year
  Sex: Female

DRUGS (45)
  1. DARBEPOETIN ALFA [Suspect]
     Active Substance: DARBEPOETIN ALFA
     Dosage: 60 MUG, Q2WK
     Route: 058
     Dates: start: 20170906, end: 20170918
  2. UBRETID [Concomitant]
     Active Substance: DISTIGMINE BROMIDE
     Indication: NEUROGENIC BLADDER
     Dosage: 5 MG, UNK
     Route: 048
     Dates: end: 20170720
  3. BAYASPIRIN [Concomitant]
     Active Substance: ASPIRIN
     Indication: ANGINA PECTORIS
     Dosage: 100 MG, UNK
     Route: 048
     Dates: end: 20180822
  4. NAIXAN [Concomitant]
     Active Substance: NAPROXEN SODIUM
     Dosage: 300 MG, UNK
     Route: 048
     Dates: start: 20170629, end: 20170705
  5. DARBEPOETIN ALFA [Suspect]
     Active Substance: DARBEPOETIN ALFA
     Dosage: 60 MUG, Q4WK
     Route: 058
     Dates: start: 20180104, end: 2018
  6. MAINTATE [Concomitant]
     Active Substance: BISOPROLOL FUMARATE
     Dosage: 5 MG, UNK
     Route: 048
     Dates: end: 20180822
  7. FERRUM [Concomitant]
     Active Substance: FERROUS FUMARATE
     Dosage: 100 MG, UNK
     Route: 048
     Dates: start: 20171220
  8. NEO-MINOPHAGEN C [Concomitant]
     Active Substance: AMMONIUM GLYCYRRHIZATE
     Dosage: UNK
     Route: 042
     Dates: start: 20170626, end: 20170628
  9. DARBEPOETIN ALFA [Suspect]
     Active Substance: DARBEPOETIN ALFA
     Dosage: 120 MUG, UNK
     Route: 058
     Dates: start: 20170628, end: 20170628
  10. DARBEPOETIN ALFA [Suspect]
     Active Substance: DARBEPOETIN ALFA
     Dosage: 60 MUG, QWK
     Route: 058
     Dates: start: 20170705, end: 20170712
  11. FEBURIC [Suspect]
     Active Substance: FEBUXOSTAT
     Indication: HYPERURICAEMIA
     Dosage: 10 MG, UNK
     Route: 048
     Dates: start: 20170621, end: 20170627
  12. NEXIUM [Concomitant]
     Active Substance: ESOMEPRAZOLE MAGNESIUM
     Indication: GASTROOESOPHAGEAL REFLUX DISEASE
     Dosage: 20 MG, UNK
     Route: 048
  13. MAINTATE [Concomitant]
     Active Substance: BISOPROLOL FUMARATE
     Indication: CARDIAC FAILURE CHRONIC
     Dosage: 5 MG, UNK
     Route: 048
  14. SAWACILLIN [Concomitant]
     Active Substance: AMOXICILLIN
     Dosage: 750 MG, UNK
     Route: 048
     Dates: start: 20170626, end: 20170705
  15. ANTEBATE [Concomitant]
     Active Substance: BETAMETHASONE DIPROPIONATE
     Dosage: UNK
     Route: 061
     Dates: start: 20170626, end: 20170705
  16. DECADRON [Concomitant]
     Active Substance: DEXAMETHASONE
     Dosage: 3.3 MG, UNK
     Route: 065
     Dates: start: 20170626, end: 20170628
  17. DISTIGMINE BROMIDE [Concomitant]
     Active Substance: DISTIGMINE BROMIDE
     Indication: NEUROGENIC BLADDER
     Dosage: 5 MG
     Route: 048
     Dates: start: 20180802, end: 20180822
  18. DARBEPOETIN ALFA [Suspect]
     Active Substance: DARBEPOETIN ALFA
     Dosage: 30 MUG, UNK
     Route: 058
     Dates: start: 20171220, end: 20171220
  19. ACOFIDE [Concomitant]
     Active Substance: ACOTIAMIDE HYDROCHLORIDE
     Indication: DYSPEPSIA
     Dosage: 300 MG, UNK
     Route: 048
     Dates: end: 20170926
  20. CALONAL [Concomitant]
     Active Substance: ACETAMINOPHEN
     Dosage: 1500 MG
     Route: 048
     Dates: start: 20180711, end: 20180718
  21. XARELTO [Concomitant]
     Active Substance: RIVAROXABAN
     Indication: ATRIAL FIBRILLATION
     Dosage: 10 MG, UNK
     Route: 048
     Dates: end: 20180822
  22. CLENAFIN [Concomitant]
     Active Substance: EFINACONAZOLE
     Dosage: UNK
     Route: 061
     Dates: start: 20170426, end: 20180822
  23. POLARAMINE [Concomitant]
     Active Substance: DEXCHLORPHENIRAMINE MALEATE
     Dosage: UNK
     Route: 065
     Dates: start: 20170626, end: 20170628
  24. SHAKUYAKUKANZOTO [Concomitant]
     Active Substance: HERBALS
     Dosage: 1 DF
     Route: 048
     Dates: start: 20180704, end: 20180822
  25. TENELIA [Concomitant]
     Active Substance: TENELIGLIPTIN
     Dosage: 20 MG, UNK
     Route: 048
     Dates: start: 20171122, end: 20180822
  26. DARBEPOETIN ALFA [Suspect]
     Active Substance: DARBEPOETIN ALFA
     Indication: MYELODYSPLASTIC SYNDROME
     Dosage: 240 MUG, QWK
     Route: 058
     Dates: start: 20170420, end: 20170621
  27. LASIX [Suspect]
     Active Substance: FUROSEMIDE
     Indication: CARDIAC FAILURE CHRONIC
     Dosage: 60 MG, UNK
     Route: 048
  28. ALDACTONE A [Suspect]
     Active Substance: SPIRONOLACTONE
     Indication: CARDIAC FAILURE CHRONIC
     Dosage: 75 MG, UNK
     Route: 048
     Dates: end: 20180822
  29. ZYLORIC [Suspect]
     Active Substance: ALLOPURINOL
     Indication: HYPERURICAEMIA
     Dosage: 200 MG, UNK
     Route: 048
     Dates: start: 20170816, end: 20170926
  30. EBRANTIL [Concomitant]
     Active Substance: URAPIDIL
     Indication: NEUROGENIC BLADDER
     Dosage: 60 MG, UNK
     Route: 048
     Dates: end: 20170720
  31. BENET [Concomitant]
     Active Substance: RISEDRONATE SODIUM
     Indication: OSTEOPOROSIS
     Dosage: 17.5 MG, UNK
     Route: 048
     Dates: end: 20180822
  32. FEXOFENADINE HYDROCHLORIDE. [Concomitant]
     Active Substance: FEXOFENADINE HYDROCHLORIDE
     Dosage: 120 MG, UNK
     Route: 048
     Dates: start: 20170426, end: 20170502
  33. LAMISIL [Concomitant]
     Active Substance: TERBINAFINE HYDROCHLORIDE
     Dosage: UNK
     Route: 061
     Dates: start: 20170426, end: 20180822
  34. FERRUM [Concomitant]
     Active Substance: FERROUS FUMARATE
     Dosage: 100 MG, UNK
     Route: 048
     Dates: start: 20170531, end: 20170913
  35. MUCODYNE [Concomitant]
     Active Substance: CARBOCYSTEINE
     Dosage: 1500 MG, UNK
     Route: 048
     Dates: start: 20170626, end: 20170705
  36. KEFRAL [Concomitant]
     Active Substance: CEFACLOR
     Dosage: 750 MG
     Route: 048
     Dates: start: 20180615, end: 20180711
  37. DARBEPOETIN ALFA [Suspect]
     Active Substance: DARBEPOETIN ALFA
     Dosage: 60 MUG, UNK
     Route: 058
     Dates: start: 20170926, end: 20170926
  38. SIGMART [Concomitant]
     Active Substance: NICORANDIL
     Indication: ANGINA PECTORIS
     Dosage: 15 MG, UNK
     Route: 048
     Dates: end: 20180822
  39. AUGMENTIN [Concomitant]
     Active Substance: AMOXICILLIN\CLAVULANATE POTASSIUM
     Dosage: 750 MG, UNK
     Route: 048
     Dates: start: 20170626, end: 20170705
  40. VOGLIBOSE [Concomitant]
     Active Substance: VOGLIBOSE
     Dosage: 0.6 MG
     Route: 048
     Dates: start: 20180718, end: 20180822
  41. CEFDINIR. [Concomitant]
     Active Substance: CEFDINIR
     Dosage: 300 MG
     Route: 048
     Dates: start: 20180719, end: 20180724
  42. DARBEPOETIN ALFA [Suspect]
     Active Substance: DARBEPOETIN ALFA
     Dosage: 30 MUG, Q3WK
     Route: 058
     Dates: start: 20170720, end: 20170809
  43. CRAVIT [Suspect]
     Active Substance: LEVOFLOXACIN
     Indication: HYPERURICAEMIA
     Dosage: 500 MG, UNK
     Route: 048
     Dates: start: 20170420, end: 20170425
  44. ENTERONON-R [Concomitant]
     Active Substance: PROBIOTICS NOS
     Dosage: 3 G
     Route: 048
     Dates: start: 20180808, end: 20180822
  45. BUSCOPAN [Concomitant]
     Active Substance: BUTYLSCOPOLAMINE BROMIDE
     Dosage: 20 MG
     Route: 065
     Dates: start: 20180808, end: 20180808

REACTIONS (20)
  - Circulatory collapse [Fatal]
  - Cystitis [Recovered/Resolved]
  - Cystitis bacterial [Recovered/Resolved]
  - Cystitis bacterial [Recovered/Resolved]
  - Blood creatinine increased [Recovering/Resolving]
  - Nephrogenic anaemia [Recovering/Resolving]
  - Cystitis bacterial [Recovered/Resolved]
  - Iron deficiency [Recovering/Resolving]
  - Dermatophytosis of nail [Recovering/Resolving]
  - Osteoarthritis [Not Recovered/Not Resolved]
  - Rash [Recovered/Resolved]
  - Enterocolitis [Recovering/Resolving]
  - Platelet count decreased [Not Recovered/Not Resolved]
  - Muscle spasms [Unknown]
  - Diabetes mellitus [Not Recovered/Not Resolved]
  - Cough [Recovered/Resolved]
  - Muscle spasms [Recovering/Resolving]
  - Rash [Recovered/Resolved]
  - Rash [Recovered/Resolved]
  - Pain in extremity [Recovered/Resolved]

NARRATIVE: CASE EVENT DATE: 20170424
